FAERS Safety Report 10722736 (Version 1)
Quarter: 2015Q1

REPORT INFORMATION
  Report Type: Report from Study
  Country: AT (occurrence: AT)
  Receive Date: 20150120
  Receipt Date: 20150120
  Transmission Date: 20150721
  Serious: Yes (Other)
  Sender: FDA-Public Use
  Company Number: AT-GLAXOSMITHKLINE INC.-AT2015GSK004440

PATIENT
  Age: 38 Year
  Sex: Male

DRUGS (1)
  1. DABRAFENIB [Suspect]
     Active Substance: DABRAFENIB
     Indication: METASTATIC MALIGNANT MELANOMA

REACTIONS (4)
  - Skin cancer [Unknown]
  - Palmar-plantar erythrodysaesthesia syndrome [Unknown]
  - Pyrexia [Unknown]
  - Pain in extremity [Unknown]
